FAERS Safety Report 6039678-8 (Version None)
Quarter: 2009Q1

REPORT INFORMATION
  Report Type: 
  Country: None (occurrence: None)
  Receive Date: 20090116
  Receipt Date: 20090113
  Transmission Date: 20090719
  Serious: Yes (Death)
  Sender: FDA-Public Use
  Company Number: US-BRISTOL-MYERS SQUIBB COMPANY-14470199

PATIENT
  Age: 48 Year
  Sex: Female

DRUGS (9)
  1. IRBESARTAN [Suspect]
     Route: 048
  2. BUPROPION HCL [Suspect]
     Route: 048
  3. VENLAFAXINE HCL [Suspect]
     Route: 048
  4. ACETAMINOPHEN AND HYDROCODONE BITARTRATE [Suspect]
     Route: 048
  5. TRAMADOL HCL [Suspect]
     Route: 048
  6. COCAINE [Suspect]
     Route: 048
  7. HYDROCHLOROTHIAZIDE [Suspect]
     Route: 048
  8. DIPHENOXYLATE HCL + ATROPINE SULFATE [Suspect]
     Route: 048
  9. OLANZAPINE [Suspect]
     Route: 048

REACTIONS (1)
  - COMPLETED SUICIDE [None]
